FAERS Safety Report 15826266 (Version 1)
Quarter: 2018Q4

REPORT INFORMATION
  Report Type: Spontaneous
  Country: US (occurrence: US)
  Receive Date: 20181218
  Receipt Date: 20181218
  Transmission Date: 20190205
  Serious: No
  Sender: FDA-Public Use
  Company Number: None

PATIENT
  Age: 30 Year
  Sex: Female

DRUGS (2)
  1. TACROLIMUS CAP 1 MG [Suspect]
     Active Substance: TACROLIMUS
     Dates: start: 201612
  2. MYCOPHENOLIC TAB [Suspect]
     Active Substance: MYCOPHENOLIC ACID
     Dates: start: 201612

REACTIONS (1)
  - Headache [None]

NARRATIVE: CASE EVENT DATE: 20181217
